FAERS Safety Report 7988910-X (Version None)
Quarter: 2011Q4

REPORT INFORMATION
  Report Type: 
  Country: None (occurrence: None)
  Receive Date: 20111007
  Receipt Date: 20110831
  Transmission Date: 20120403
  Serious: No
  Sender: FDA-Public Use
  Company Number: 2011HGS-002425

PATIENT
  Age: 50 Year
  Sex: Female
  Weight: 151.5014 kg

DRUGS (25)
  1. DILTIAZEM/XARTUA XT [Concomitant]
  2. BACTRIM [Concomitant]
  3. B-12 (CYANOCOBALAMIN) [Concomitant]
  4. COZAAR [Concomitant]
  5. HYDROXYCHLOROQUINE SULFATE [Concomitant]
  6. ASCORBIC ACID [Concomitant]
  7. FOLIC ACID [Concomitant]
  8. FUROSEMIDE [Concomitant]
  9. NEURONTIN [Concomitant]
  10. KLOR-CON [Concomitant]
  11. LEVOXYL [Concomitant]
  12. MUPIROCIN [Concomitant]
  13. LACTOBACILLUS ACIDOPHILUS [Concomitant]
  14. TRICOR [Concomitant]
  15. BONIVA [Concomitant]
  16. PRILOSEC [Concomitant]
  17. BENLYSTA [Suspect]
     Indication: SYSTEMIC LUPUS ERYTHEMATOSUS
     Dosage: 10 MG/KG, 1 IN 4 WK, INTRAVENOUS DRIP
     Route: 041
     Dates: start: 20110707, end: 20110707
  18. ALLEGRA D(ALLEGRA-D SLOW RELEASE) (PSEUDOEPHEDRINE HYDROCHLORIDE, FEXO [Concomitant]
  19. CYCLOBENZAPRINE [Concomitant]
  20. LORTAB (VICODIN) (PARACETAMOL, HYDROCODONE BITARTRATE) [Concomitant]
  21. XANAX [Concomitant]
  22. FLAXSEED OIL (LINUM USITATISSIMUM SEED OIL) [Concomitant]
  23. PREDNISONE [Concomitant]
  24. TOBRAMYCIN [Concomitant]
  25. STOOL SOFTENER (DOCUSATE SODIUM) [Concomitant]

REACTIONS (5)
  - CHEST DISCOMFORT [None]
  - HYPERHIDROSIS [None]
  - RESPIRATORY RATE INCREASED [None]
  - FLUSHING [None]
  - BLOOD PRESSURE DECREASED [None]
